FAERS Safety Report 21885499 (Version 1)
Quarter: 2023Q1

REPORT INFORMATION
  Report Type: Spontaneous
  Country: JP (occurrence: JP)
  Receive Date: 20230119
  Receipt Date: 20230119
  Transmission Date: 20230418
  Serious: Yes (Disabling)
  Sender: FDA-Public Use
  Company Number: JP-ALLERGAN-2301055US

PATIENT
  Sex: Male

DRUGS (3)
  1. ALPHAGAN P [Suspect]
     Active Substance: BRIMONIDINE TARTRATE
     Indication: Open angle glaucoma
     Dosage: 2 GTT, BID
     Route: 047
     Dates: start: 20190515, end: 20201222
  2. BRIMONIDINE TARTRATE\BRINZOLAMIDE [Suspect]
     Active Substance: BRIMONIDINE TARTRATE\BRINZOLAMIDE
     Indication: Open angle glaucoma
     Dosage: 2 GTT
     Route: 047
     Dates: start: 20201223, end: 20221012
  3. LATACHIMO [Concomitant]
     Indication: Open angle glaucoma
     Dosage: 1 GTT, QD
     Route: 047
     Dates: start: 20201021, end: 20221012

REACTIONS (2)
  - Corneal opacity [Not Recovered/Not Resolved]
  - Eye discharge [Unknown]

NARRATIVE: CASE EVENT DATE: 20220328
